FAERS Safety Report 5068138-6 (Version None)
Quarter: 2006Q3

REPORT INFORMATION
  Report Type: 
  Country: None (occurrence: None)
  Receive Date: 20060802
  Receipt Date: 20060721
  Transmission Date: 20061208
  Serious: Yes (Hospitalization)
  Sender: FDA-Public Use
  Company Number: FR-BRISTOL-MYERS SQUIBB COMPANY-13458658

PATIENT
  Age: 71 Year
  Sex: Male

DRUGS (5)
  1. GLUCOVANCE [Suspect]
     Indication: DIABETES MELLITUS NON-INSULIN-DEPENDENT
     Dosage: DOSAGE FORM = UNKNOWN
     Route: 048
     Dates: end: 20060627
  2. DILACOR XR [Concomitant]
     Indication: ESSENTIAL HYPERTENSION
     Route: 048
  3. ATORVASTATIN CALCIUM [Concomitant]
     Indication: LIPID METABOLISM DISORDER
     Route: 048
  4. OLMETEC [Concomitant]
     Indication: ESSENTIAL HYPERTENSION
     Route: 048
  5. PANTOPRAZOLE SODIUM [Concomitant]
     Route: 048

REACTIONS (2)
  - HYPOGLYCAEMIA [None]
  - MALAISE [None]
